FAERS Safety Report 18134519 (Version 1)
Quarter: 2020Q3

REPORT INFORMATION
  Report Type: Spontaneous
  Country: US (occurrence: US)
  Receive Date: 20200810
  Receipt Date: 20200810
  Transmission Date: 20201103
  Serious: Yes (Death)
  Sender: FDA-Public Use
  Company Number: None

PATIENT
  Age: 81 Year
  Sex: Female

DRUGS (25)
  1. PROLIA [Suspect]
     Active Substance: DENOSUMAB
     Indication: SENILE OSTEOPOROSIS
     Dosage: ?          OTHER FREQUENCY:Q6M;?
     Route: 058
  2. CEFDINIR. [Concomitant]
     Active Substance: CEFDINIR
  3. FUROSEMIDE. [Concomitant]
     Active Substance: FUROSEMIDE
  4. HYDROCO/APAP [Concomitant]
     Active Substance: ACETAMINOPHEN\HYDROCODONE
  5. NITROFURANTIN [Concomitant]
     Active Substance: NITROFURANTOIN
  6. PREGABALIN. [Concomitant]
     Active Substance: PREGABALIN
  7. GABAPENTIN. [Concomitant]
     Active Substance: GABAPENTIN
  8. POT CL MICRO [Concomitant]
  9. DEXILANT [Concomitant]
     Active Substance: DEXLANSOPRAZOLE
  10. ONDANSETRON [Concomitant]
     Active Substance: ONDANSETRON
  11. CIRPOFLOXACIN [Concomitant]
  12. CLOPIDOGREL [Concomitant]
     Active Substance: CLOPIDOGREL BISULFATE
  13. CREON [Concomitant]
     Active Substance: PANCRELIPASE AMYLASE\PANCRELIPASE LIPASE\PANCRELIPASE PROTEASE
  14. DOXYCYCL HYC [Concomitant]
  15. LYRICA [Concomitant]
     Active Substance: PREGABALIN
  16. METOPROL SUC [Concomitant]
  17. METRONIDAZOL [Concomitant]
     Active Substance: METRONIDAZOLE
  18. ISOSORB MONO [Concomitant]
     Active Substance: ISOSORBIDE MONONITRATE
  19. MUPIROCIN. [Concomitant]
     Active Substance: MUPIROCIN
  20. NIFEDIPINE. [Concomitant]
     Active Substance: NIFEDIPINE
  21. METHOTREXATE. [Concomitant]
     Active Substance: METHOTREXATE
  22. ATORVASTATIN [Concomitant]
     Active Substance: ATORVASTATIN
  23. MORPHINE SUL [Concomitant]
     Active Substance: MORPHINE SULFATE
  24. NOVOLOG MIX 70/30 [Concomitant]
     Active Substance: INSULIN ASPART
  25. PROMETHAZINE [Concomitant]
     Active Substance: PROMETHAZINE HYDROCHLORIDE

REACTIONS (1)
  - Death [None]

NARRATIVE: CASE EVENT DATE: 20200807
